FAERS Safety Report 22159984 (Version 1)
Quarter: 2023Q1

REPORT INFORMATION
  Report Type: Spontaneous
  Country: JP (occurrence: JP)
  Receive Date: 20230331
  Receipt Date: 20230331
  Transmission Date: 20230417
  Serious: Yes (Hospitalization)
  Sender: FDA-Public Use
  Company Number: JP-CHEMOCENTRYX, INC.-2023JPCCXI0925

PATIENT

DRUGS (10)
  1. TAVNEOS [Suspect]
     Active Substance: AVACOPAN
     Indication: Microscopic polyangiitis
     Dosage: 60 MG, QD
     Route: 048
     Dates: start: 20221116, end: 202302
  2. PREDNISOLONE [Concomitant]
     Active Substance: PREDNISOLONE
     Indication: Microscopic polyangiitis
     Dosage: UNK
     Route: 065
  3. RITUXIMAB [Concomitant]
     Active Substance: RITUXIMAB
     Indication: Microscopic polyangiitis
     Dosage: 500 MG, QD
     Route: 042
     Dates: start: 20221125, end: 20221125
  4. RITUXIMAB [Concomitant]
     Active Substance: RITUXIMAB
     Dosage: 500 MG, QD
     Route: 042
     Dates: start: 20221129, end: 20221129
  5. RITUXIMAB [Concomitant]
     Active Substance: RITUXIMAB
     Dosage: 500 MG, QD
     Route: 042
     Dates: start: 20221206, end: 20221206
  6. RITUXIMAB [Concomitant]
     Active Substance: RITUXIMAB
     Dosage: 500 MG, QD
     Route: 042
     Dates: start: 20221213, end: 20221213
  7. METHYLPREDNISOLONE [Concomitant]
     Active Substance: METHYLPREDNISOLONE
     Indication: Product used for unknown indication
     Dosage: UNK
     Route: 065
     Dates: start: 202211, end: 202302
  8. REMDESIVIR [Concomitant]
     Active Substance: REMDESIVIR
     Dosage: UNK
     Route: 042
     Dates: start: 20221217, end: 20221221
  9. REMDESIVIR [Concomitant]
     Active Substance: REMDESIVIR
     Dosage: UNK
     Route: 042
     Dates: start: 202302, end: 202302
  10. DEXAMETHASONE [Concomitant]
     Active Substance: DEXAMETHASONE
     Dosage: 6.6 MG, QD
     Route: 065
     Dates: start: 202302, end: 202302

REACTIONS (2)
  - SARS-CoV-2 test positive [Recovered/Resolved]
  - COVID-19 [Recovered/Resolved]

NARRATIVE: CASE EVENT DATE: 20221217
